FAERS Safety Report 7376598-0 (Version None)
Quarter: 2011Q1

REPORT INFORMATION
  Report Type: 
  Country: None (occurrence: None)
  Receive Date: 20110325
  Receipt Date: 20110317
  Transmission Date: 20110831
  Serious: Yes (Other)
  Sender: FDA-Public Use
  Company Number: BR-GENENTECH-313493

PATIENT
  Sex: Female

DRUGS (2)
  1. MABTHERA [Suspect]
     Dosage: 1000 MG, UNK
     Route: 042
  2. MABTHERA [Suspect]
     Indication: SYSTEMIC LUPUS ERYTHEMATOSUS
     Dosage: UNK
     Route: 042

REACTIONS (7)
  - MALAISE [None]
  - SKIN REACTION [None]
  - TREMOR [None]
  - PALLOR [None]
  - DYSPNOEA [None]
  - VERTIGO [None]
  - PARAESTHESIA [None]
